FAERS Safety Report 16708963 (Version 1)
Quarter: 2019Q3

REPORT INFORMATION
  Report Type: Spontaneous
  Country: GB (occurrence: GB)
  Receive Date: 20190816
  Receipt Date: 20190816
  Transmission Date: 20191004
  Serious: Yes (Hospitalization)
  Sender: FDA-Public Use
  Company Number: GB-TEVA-2019-GB-1092852

PATIENT
  Age: 54 Year
  Sex: Male

DRUGS (2)
  1. DOXYCYCLINE HYCLATE. [Suspect]
     Active Substance: DOXYCYCLINE HYCLATE
     Indication: SKIN INFECTION
     Dosage: 200 MILLIGRAM
     Route: 048
     Dates: start: 20190531, end: 20190531
  2. DOXYCYCLINE HYCLATE. [Suspect]
     Active Substance: DOXYCYCLINE HYCLATE
     Dosage: 100 MILLIGRAM
     Route: 048
     Dates: start: 20190601, end: 20190606

REACTIONS (5)
  - Headache [Unknown]
  - Peripheral swelling [Unknown]
  - Dyspnoea [Unknown]
  - Fatigue [Unknown]
  - Drug reaction with eosinophilia and systemic symptoms [Recovered/Resolved with Sequelae]

NARRATIVE: CASE EVENT DATE: 20190601
